FAERS Safety Report 23367296 (Version 1)
Quarter: 2024Q1

REPORT INFORMATION
  Report Type: Spontaneous
  Country: US (occurrence: US)
  Receive Date: 20240104
  Receipt Date: 20240104
  Transmission Date: 20240409
  Serious: No
  Sender: FDA-Public Use
  Company Number: MCN: 2023-060963

PATIENT
  Sex: Female

DRUGS (1)
  1. PLATINOL [Suspect]
     Active Substance: CISPLATIN
     Indication: Chemotherapy
     Dosage: UNK
     Route: 065

REACTIONS (1)
  - Adverse drug reaction [Unknown]

NARRATIVE: CASE EVENT DATE: 20160101
